FAERS Safety Report 7338842-5 (Version None)
Quarter: 2011Q1

REPORT INFORMATION
  Report Type: 
  Country: None (occurrence: None)
  Receive Date: 20110308
  Receipt Date: 20110303
  Transmission Date: 20110831
  Serious: Yes (Other)
  Sender: FDA-Public Use
  Company Number: US-PFIZER INC-2009183483

PATIENT
  Sex: Male
  Weight: 125 kg

DRUGS (4)
  1. LOVAZA [Concomitant]
     Indication: BLOOD CHOLESTEROL INCREASED
     Dosage: 4 PILLS/DAY
  2. VITAMIN D [Concomitant]
     Dosage: UNK
  3. LIPITOR [Suspect]
     Indication: BLOOD CHOLESTEROL INCREASED
     Dosage: UNK
     Route: 048
     Dates: start: 20090301, end: 20090301
  4. FISH OIL [Concomitant]
     Dosage: UNK

REACTIONS (2)
  - HERNIA [None]
  - MYALGIA [None]
